FAERS Safety Report 15627941 (Version 4)
Quarter: 2019Q1

REPORT INFORMATION
  Report Type: Report from Study
  Country: FR (occurrence: FR)
  Receive Date: 20181116
  Receipt Date: 20190115
  Transmission Date: 20190417
  Serious: Yes (Other)
  Sender: FDA-Public Use
  Company Number: FR-TAKEDA-2018TUS028672

PATIENT
  Age: 53 Year
  Sex: Female
  Weight: 81 kg

DRUGS (10)
  1. BRIGATINIB [Suspect]
     Active Substance: BRIGATINIB
     Dosage: 180 MG, QD
     Route: 065
  2. BRIGATINIB [Suspect]
     Active Substance: BRIGATINIB
     Dosage: 120 MG, QD
     Route: 065
     Dates: start: 20181108
  3. ALTEISDUO [Concomitant]
     Active Substance: HYDROCHLOROTHIAZIDE\OLMESARTAN MEDOXOMIL
     Indication: HYPERTENSION
     Dosage: UNK, QD
     Route: 065
  4. BRIGATINIB [Suspect]
     Active Substance: BRIGATINIB
     Indication: NON-SMALL CELL LUNG CANCER
     Dosage: 90 MG, QD
     Route: 065
     Dates: start: 20180828
  5. URBANYL [Concomitant]
     Active Substance: CLOBAZAM
     Indication: SEIZURE
     Dosage: 10 MG, QD
     Route: 048
     Dates: start: 20180827
  6. KEPPRA [Concomitant]
     Active Substance: LEVETIRACETAM
     Indication: SEIZURE
     Dosage: 250 MG, BID
     Route: 065
     Dates: start: 20180827
  7. SOLUPRED                           /00016201/ [Concomitant]
     Active Substance: PREDNISOLONE
     Indication: EPILEPSY
     Dosage: 30 MG, QD
     Route: 065
     Dates: start: 20180827
  8. GLUCOPHAGE [Concomitant]
     Active Substance: METFORMIN HYDROCHLORIDE
     Indication: TYPE 2 DIABETES MELLITUS
     Dosage: 850 MG, BID
     Route: 065
     Dates: start: 1999
  9. BRIGATINIB [Suspect]
     Active Substance: BRIGATINIB
     Dosage: 90 MG, QD
     Route: 065
     Dates: start: 20181220
  10. MEDROL [Concomitant]
     Active Substance: METHYLPREDNISOLONE
     Indication: SEIZURE
     Dosage: 40 MG, QD
     Route: 065
     Dates: start: 20180827

REACTIONS (10)
  - Blood lactate dehydrogenase abnormal [Recovering/Resolving]
  - Visual impairment [Recovering/Resolving]
  - Headache [Unknown]
  - Blood creatine phosphokinase increased [Not Recovered/Not Resolved]
  - Alanine aminotransferase increased [Not Recovered/Not Resolved]
  - Neurotoxicity [Recovered/Resolved]
  - Aspartate aminotransferase increased [Not Recovered/Not Resolved]
  - Balance disorder [Unknown]
  - Tremor [Unknown]
  - Blood pressure abnormal [Recovered/Resolved]

NARRATIVE: CASE EVENT DATE: 20181024
